FAERS Safety Report 16072973 (Version 2)
Quarter: 2019Q1

REPORT INFORMATION
  Report Type: Spontaneous
  Country: CH (occurrence: CH)
  Receive Date: 20190314
  Receipt Date: 20190319
  Transmission Date: 20190418
  Serious: Yes (Other)
  Sender: FDA-Public Use
  Company Number: PHHY2019CH052828

PATIENT
  Sex: Male
  Weight: 2.57 kg

DRUGS (3)
  1. BETAMETHASONE. [Suspect]
     Active Substance: BETAMETHASONE
     Dosage: UNK (THIRD COURSE WAS GIVEN)
     Route: 065
  2. BETAMETHASONE. [Suspect]
     Active Substance: BETAMETHASONE
     Dosage: UNK (A SECOND COURSE WAS GIVEN AT 31 WG) UNK
     Route: 065
  3. BETAMETHASONE. [Suspect]
     Active Substance: BETAMETHASONE
     Indication: FOETAL GROWTH RESTRICTION
     Dosage: 2X12MG 24 HOURS APART
     Route: 065

REACTIONS (2)
  - Foetal exposure during pregnancy [Unknown]
  - Premature baby [Unknown]
